FAERS Safety Report 9898086 (Version 1)
Quarter: 2014Q1

REPORT INFORMATION
  Report Type: Spontaneous
  Country: US (occurrence: US)
  Receive Date: 20140214
  Receipt Date: 20140214
  Transmission Date: 20141002
  Serious: No
  Sender: FDA-Public Use
  Company Number: US-PFIZER INC-2014040067

PATIENT
  Age: 49 Year
  Sex: Female
  Weight: 95.24 kg

DRUGS (2)
  1. AMLODIPINE BESILATE [Suspect]
     Indication: ARTERIAL SPASM
     Dosage: 5 MG, DAILY
  2. VITAMIN D [Concomitant]
     Indication: VITAMIN D DEFICIENCY
     Dosage: 50000 IU, WEEKLY

REACTIONS (4)
  - Hypersensitivity [Unknown]
  - Joint swelling [Unknown]
  - Erythema [Unknown]
  - Off label use [Unknown]
